FAERS Safety Report 5067492-9 (Version None)
Quarter: 2006Q3

REPORT INFORMATION
  Report Type: 
  Country: None (occurrence: None)
  Receive Date: 20060728
  Receipt Date: 20060711
  Transmission Date: 20061208
  Serious: Yes (Other)
  Sender: FDA-Public Use
  Company Number: US200607003748

PATIENT
  Age: 67 Year
  Sex: Female

DRUGS (10)
  1. HUMALOG [Suspect]
  2. CLARITIN /USA/ (LORATADINE) [Concomitant]
  3. ALPHAGAN [Concomitant]
  4. TAPAZOLE [Concomitant]
  5. ASPIRIN [Concomitant]
  6. LANTUS [Concomitant]
  7. UNIVASC [Concomitant]
  8. LEXAPRO /USA/ (ESCITALOPRAM) [Concomitant]
  9. HEMATINIC FACTORS (HEMATINIC FACTORS) [Concomitant]
  10. BYETTA (EXENATIDE) PEN, DISPOSABLE [Concomitant]

REACTIONS (2)
  - CARCINOID TUMOUR OF THE STOMACH [None]
  - PERNICIOUS ANAEMIA [None]
